FAERS Safety Report 20836541 (Version 1)
Quarter: 2022Q2

REPORT INFORMATION
  Report Type: Spontaneous
  Country: GB (occurrence: GB)
  Receive Date: 20220517
  Receipt Date: 20220517
  Transmission Date: 20220721
  Serious: Yes (Other)
  Sender: FDA-Public Use
  Company Number: GB-MHRA-MED-202205020204454410-D6FYS

PATIENT
  Age: 51 Year
  Sex: Female
  Weight: 73 kg

DRUGS (1)
  1. ESOMEPRAZOLE [Suspect]
     Active Substance: ESOMEPRAZOLE
     Indication: Gastrooesophageal reflux disease
     Dosage: 40MG ONCE A DAY
     Route: 065

REACTIONS (1)
  - Gastrointestinal polyp haemorrhage [Not Recovered/Not Resolved]

NARRATIVE: CASE EVENT DATE: 20211115
